FAERS Safety Report 8220229-4 (Version None)
Quarter: 2012Q1

REPORT INFORMATION
  Report Type: 
  Country: None (occurrence: None)
  Receive Date: 20120320
  Receipt Date: 20120308
  Transmission Date: 20120608
  Serious: Yes (Other)
  Sender: FDA-Public Use
  Company Number: US-BAYER-2011-122140

PATIENT
  Age: 31 Year
  Sex: Female
  Weight: 97.506 kg

DRUGS (6)
  1. HYDROCHLOROTHIAZIDE [Concomitant]
     Dosage: 50 MG, UNK
     Route: 048
  2. ZOLOFT [Concomitant]
     Dosage: QD100 MG, UNK
     Route: 048
  3. SIMVASTATIN [Concomitant]
     Dosage: 75 MG, UNK
     Route: 048
  4. CHANTIX [Concomitant]
  5. TRICOR [Concomitant]
     Dosage: 145 MG, UNK
  6. YAZ [Suspect]
     Dosage: UNK
     Route: 048
     Dates: start: 20080501, end: 20091001

REACTIONS (7)
  - ANXIETY [None]
  - EMOTIONAL DISTRESS [None]
  - PAIN [None]
  - INJURY [None]
  - CHEST PAIN [None]
  - PULMONARY EMBOLISM [None]
  - GENERAL PHYSICAL HEALTH DETERIORATION [None]
